FAERS Safety Report 10515769 (Version 1)
Quarter: 2014Q4

REPORT INFORMATION
  Report Type: Spontaneous
  Country: US (occurrence: None)
  Receive Date: 20141001
  Receipt Date: 20141001
  Transmission Date: 20150528
  Serious: Yes (Hospitalization)
  Sender: FDA-Public Use
  Company Number: 2014009761

PATIENT
  Age: 78 Year
  Sex: Female
  Weight: 67.6 kg

DRUGS (3)
  1. KEPPRA [Concomitant]
     Active Substance: LEVETIRACETAM
  2. VIMPAT [Suspect]
     Active Substance: LACOSAMIDE
     Indication: SEIZURE
     Dosage: 100 MG, 2X/DAY (BID), STARTED 1 OR 1.5YRS AGO, ORAL
     Route: 048
     Dates: end: 201407
  3. XARELTO [Concomitant]
     Active Substance: RIVAROXABAN

REACTIONS (5)
  - Dizziness [None]
  - Fatigue [None]
  - Inappropriate schedule of drug administration [None]
  - Fall [None]
  - Wrong technique in drug usage process [None]

NARRATIVE: CASE EVENT DATE: 2014
